FAERS Safety Report 9575712 (Version 1)
Quarter: 2013Q4

REPORT INFORMATION
  Report Type: Spontaneous
  Country: US (occurrence: US)
  Receive Date: 20131001
  Receipt Date: 20131001
  Transmission Date: 20140711
  Serious: No
  Sender: FDA-Public Use
  Company Number: US-AMGEN-USASP2012036197

PATIENT
  Age: 59 Year
  Sex: Female
  Weight: 145.13 kg

DRUGS (1)
  1. PROCRIT [Suspect]
     Indication: NEPHROGENIC ANAEMIA
     Dosage: 20000 IU, QWK

REACTIONS (1)
  - Expired drug administered [Not Recovered/Not Resolved]
